FAERS Safety Report 10187472 (Version 1)
Quarter: 2014Q2

REPORT INFORMATION
  Report Type: Spontaneous
  Country: US (occurrence: US)
  Receive Date: 20140522
  Receipt Date: 20140522
  Transmission Date: 20141212
  Serious: No
  Sender: FDA-Public Use
  Company Number: US-SANOFI-AVENTIS-2013SA079818

PATIENT
  Age: 67 Year
  Sex: Female

DRUGS (2)
  1. LANTUS SOLOSTAR [Suspect]
     Indication: DIABETES MELLITUS
     Dosage: PRODUCT STARTED SIX YEARS AGO. DOSE:62 UNIT(S)
     Route: 051
  2. SOLOSTAR [Concomitant]
     Indication: DIABETES MELLITUS
     Dosage: PRODUCT STARTED SIX YEARS AGO.

REACTIONS (2)
  - Visual acuity reduced [Unknown]
  - Injection site pain [Unknown]
